FAERS Safety Report 17924389 (Version 2)
Quarter: 2021Q3

REPORT INFORMATION
  Report Type: Other
  Country: US (occurrence: US)
  Receive Date: 20200622
  Receipt Date: 20210921
  Transmission Date: 20211014
  Serious: No
  Sender: FDA-Public Use
  Company Number: US-ACORDA-ACO_164913_2020

PATIENT
  Sex: Male
  Weight: 90.7 kg

DRUGS (2)
  1. INBRIJA [Suspect]
     Active Substance: LEVODOPA
     Indication: PARKINSON^S DISEASE
     Dosage: 2 DOSAGE FORM, PRN (NOT TO EXCEED FIVE DOSES)
     Dates: start: 20200327
  2. INBRIJA [Suspect]
     Active Substance: LEVODOPA
     Indication: ON AND OFF PHENOMENON

REACTIONS (3)
  - Device difficult to use [Unknown]
  - Device occlusion [Unknown]
  - Drug ineffective [Unknown]
